FAERS Safety Report 9417760 (Version 1)
Quarter: 2013Q3

REPORT INFORMATION
  Report Type: Spontaneous
  Country: CA (occurrence: CA)
  Receive Date: 20130724
  Receipt Date: 20130724
  Transmission Date: 20140515
  Serious: Yes (Hospitalization)
  Sender: FDA-Public Use
  Company Number: CA-GLAXOSMITHKLINE-A1034133A

PATIENT
  Age: 51 Year
  Sex: Female
  Weight: 91.4 kg

DRUGS (1)
  1. ADVAIR [Suspect]
     Indication: ASTHMA
     Dosage: 1PUFF TWICE PER DAY
     Route: 055
     Dates: start: 2012

REACTIONS (2)
  - Female genital operation [Unknown]
  - Dyspnoea [Recovering/Resolving]
